FAERS Safety Report 6446846-X (Version None)
Quarter: 2009Q4

REPORT INFORMATION
  Report Type: 
  Country: None (occurrence: None)
  Receive Date: 20091119
  Receipt Date: 20091110
  Transmission Date: 20100525
  Serious: Yes (Life-Threatening, Other)
  Sender: FDA-Public Use
  Company Number: CA-JNJFOC-20090103116

PATIENT
  Sex: Female
  Weight: 59 kg

DRUGS (3)
  1. REMICADE [Suspect]
     Dosage: TOTAL OF 54 DOSES TO PRESENT
     Route: 042
  2. REMICADE [Suspect]
     Dosage: RECEIVED A TOTAL OF 52 DOSES AT TIME OF EVENT
     Route: 042
  3. REMICADE [Suspect]
     Indication: RHEUMATOID ARTHRITIS
     Route: 042

REACTIONS (6)
  - ABSCESS OF SALIVARY GLAND [None]
  - COUGH [None]
  - DECREASED APPETITE [None]
  - HODGKIN'S DISEASE [None]
  - SOMNOLENCE [None]
  - WEIGHT DECREASED [None]
